FAERS Safety Report 7633593-1 (Version None)
Quarter: 2011Q3

REPORT INFORMATION
  Report Type: 
  Country: None (occurrence: None)
  Receive Date: 20110725
  Receipt Date: 20110630
  Transmission Date: 20111222
  Serious: Yes (Hospitalization, Congenital Anomaly)
  Sender: FDA-Public Use
  Company Number: US-GLAXOSMITHKLINE-A0930137A

PATIENT
  Sex: Male

DRUGS (4)
  1. PRENATAL VITAMINS [Concomitant]
  2. FERROUS SULFATE TAB [Concomitant]
  3. PAXIL [Suspect]
     Indication: DEPRESSION
     Dosage: 40MG IN THE MORNING
     Route: 064
     Dates: start: 20011031, end: 20031023
  4. PAROXETINE HCL [Suspect]
     Indication: DEPRESSION
     Route: 064
     Dates: start: 20030923

REACTIONS (14)
  - DEVELOPMENTAL DELAY [None]
  - INTESTINAL PERFORATION [None]
  - MICROCEPHALY [None]
  - EPILEPSY CONGENITAL [None]
  - MULTI-ORGAN FAILURE [None]
  - PATENT DUCTUS ARTERIOSUS [None]
  - ENCEPHALOPATHY [None]
  - BRAIN INJURY [None]
  - CEREBRAL ISCHAEMIA [None]
  - CONVULSION [None]
  - HYPERTHERMIA MALIGNANT [None]
  - MATERNAL EXPOSURE DURING PREGNANCY [None]
  - NECROTISING COLITIS [None]
  - RESPIRATORY DISTRESS [None]
